FAERS Safety Report 9539961 (Version 1)
Quarter: 2013Q2

REPORT INFORMATION
  Report Type: Spontaneous
  Country: US (occurrence: None)
  Receive Date: 20130524
  Receipt Date: 20130524
  Transmission Date: 20140414
  Serious: Yes (Other)
  Sender: FDA-Public Use
  Company Number: PHEH2013US002645

PATIENT
  Age: 67 Year
  Sex: Female
  Weight: 54.4 kg

DRUGS (9)
  1. GILENYA (FINGOLIMOD) CAPSULE, 0.5MG [Suspect]
     Indication: MULTIPLE SCLEROSIS
     Route: 048
     Dates: start: 20121002
  2. BACLOFEN (BACLOFEN) [Concomitant]
  3. AMITRIPTYLINE (AMITRIPTYLINE) [Concomitant]
  4. SOMA (CARISOPRODOL) [Concomitant]
  5. LORAZEPAM (LORAZEPAM) [Concomitant]
  6. HYDROCODONE (HYDROCODONE) [Concomitant]
  7. ASPIRIN (ACETYLSALICYLIC ACID) [Concomitant]
  8. FISH OIL (FISH OIL) [Concomitant]
  9. ANTIBIOTICS (NO INGREDIENTS/SUBSTANCES) [Concomitant]

REACTIONS (10)
  - Blood pressure increased [None]
  - Visual impairment [None]
  - Eye disorder [None]
  - Vomiting [None]
  - Panic attack [None]
  - Diarrhoea [None]
  - Influenza [None]
  - Cystitis [None]
  - Dyspnoea [None]
  - Cough [None]
